FAERS Safety Report 10951262 (Version 10)
Quarter: 2019Q1

REPORT INFORMATION
  Report Type: Spontaneous
  Country: AT (occurrence: AT)
  Receive Date: 20150324
  Receipt Date: 20190322
  Transmission Date: 20190417
  Serious: Yes (Other)
  Sender: FDA-Public Use
  Company Number: PHHY2015AT017121

PATIENT
  Age: 42 Year
  Sex: Male
  Weight: 73 kg

DRUGS (9)
  1. MYOCHOLINE [Concomitant]
     Active Substance: BETHANECHOL CHLORIDE
     Indication: INCONTINENCE
  2. CRANBERRY//VACCINIUM MACROCARPON [Concomitant]
     Active Substance: CRANBERRY
     Indication: URINARY RETENTION
  3. GILENYA [Suspect]
     Active Substance: FINGOLIMOD HYDROCHLORIDE
     Dosage: UNK UNK, QOD
     Route: 048
     Dates: start: 20150511
  4. GILENYA [Suspect]
     Active Substance: FINGOLIMOD HYDROCHLORIDE
     Indication: RELAPSING-REMITTING MULTIPLE SCLEROSIS
     Dosage: 0.5 MG, QD
     Route: 048
     Dates: start: 20140520, end: 20150109
  5. VENLAFAXIN [Concomitant]
     Active Substance: VENLAFAXINE HYDROCHLORIDE
     Indication: DEPRESSION
     Dosage: ONCE DAILY IN THE MORNING
     Route: 048
     Dates: start: 2014
  6. MYOCHOLINE [Concomitant]
     Active Substance: BETHANECHOL CHLORIDE
     Indication: URINARY RETENTION
  7. CRANBERRY//VACCINIUM MACROCARPON [Concomitant]
     Active Substance: CRANBERRY
     Indication: BLADDER DYSFUNCTION
     Dosage: ONCE IN THE MORNING
     Route: 048
  8. PROSTA URGENIN [Concomitant]
     Indication: INCONTINENCE
     Dosage: 1 DF, QD
     Route: 048
     Dates: start: 2014
  9. MYOCHOLINE [Concomitant]
     Active Substance: BETHANECHOL CHLORIDE
     Indication: BLADDER DYSFUNCTION
     Dosage: UNKNOWN DOSE, TID
     Route: 048
     Dates: start: 2014

REACTIONS (7)
  - Prescribed underdose [Unknown]
  - Blood alkaline phosphatase increased [Not Recovered/Not Resolved]
  - Aspartate aminotransferase increased [Not Recovered/Not Resolved]
  - Transaminases increased [Not Recovered/Not Resolved]
  - Gamma-glutamyltransferase increased [Not Recovered/Not Resolved]
  - Alanine aminotransferase increased [Not Recovered/Not Resolved]
  - Liver disorder [Not Recovered/Not Resolved]

NARRATIVE: CASE EVENT DATE: 20140620
